FAERS Safety Report 6706029-2 (Version None)
Quarter: 2010Q2

REPORT INFORMATION
  Report Type: 
  Country: None (occurrence: None)
  Receive Date: 20100423
  Receipt Date: 20100114
  Transmission Date: 20101027
  Serious: No
  Sender: FDA-Public Use
  Company Number: ALL1-2010-00197

PATIENT
  Age: 30 Year
  Sex: Female

DRUGS (3)
  1. VYVANSE [Suspect]
     Indication: DRUG USE FOR UNKNOWN INDICATION
     Dosage: 30 MG, 1X/DAY:QD, ORAL ; 175 MG, ORAL
     Route: 048
  2. XANAX [Concomitant]
  3. LEXAPRO [Concomitant]

REACTIONS (5)
  - DEPRESSION [None]
  - INSOMNIA [None]
  - IRRITABILITY [None]
  - OVERDOSE [None]
  - PARANOIA [None]
